FAERS Safety Report 9269586 (Version 2)
Quarter: 2013Q2

REPORT INFORMATION
  Report Type: Spontaneous
  Country: US (occurrence: US)
  Receive Date: 20130503
  Receipt Date: 20130520
  Transmission Date: 20140414
  Serious: Yes (Hospitalization)
  Sender: FDA-Public Use
  Company Number: US-BAYER-2013-052653

PATIENT
  Age: 48 Year
  Sex: Female

DRUGS (5)
  1. YAZ [Suspect]
  2. GIANVI [Suspect]
  3. SIMVASTATIN [Concomitant]
  4. VESICARE [Concomitant]
     Dosage: 5 MG, DAILY
     Dates: start: 20120409
  5. ZOCOR [Concomitant]
     Dosage: 40 MG, HS

REACTIONS (2)
  - Pulmonary embolism [None]
  - Deep vein thrombosis [None]
